FAERS Safety Report 9861698 (Version 1)
Quarter: 2014Q1

REPORT INFORMATION
  Report Type: Spontaneous
  Country: US (occurrence: None)
  Receive Date: 20140131
  Receipt Date: 20140131
  Transmission Date: 20141002
  Serious: Yes (Hospitalization)
  Sender: FDA-Public Use
  Company Number: None

PATIENT
  Age: 30 Year
  Sex: Female

DRUGS (1)
  1. GAMMAGARD [Suspect]
     Indication: MYASTHENIA GRAVIS
     Route: 042
     Dates: start: 20140123, end: 20140124

REACTIONS (1)
  - Meningitis aseptic [None]
